FAERS Safety Report 6779233-5 (Version None)
Quarter: 2010Q2

REPORT INFORMATION
  Report Type: 
  Country: None (occurrence: None)
  Receive Date: 20100618
  Receipt Date: 20100514
  Transmission Date: 20101027
  Serious: No
  Sender: FDA-Public Use
  Company Number: A0859777A

PATIENT
  Age: 77 Year
  Sex: Female

DRUGS (11)
  1. PROMACTA [Suspect]
     Indication: IDIOPATHIC THROMBOCYTOPENIC PURPURA
     Dosage: 75MG PER DAY
     Route: 048
     Dates: start: 20100204
  2. FUROSEMIDE [Concomitant]
  3. PREDNISONE [Concomitant]
  4. UNKNOWN MEDICATION [Concomitant]
  5. OMEPRAZOLE [Concomitant]
  6. TYLENOL [Concomitant]
  7. ATENOLOL [Concomitant]
  8. LISINOPRIL [Concomitant]
  9. HYDROXYZINE [Concomitant]
  10. POTASSIUM CHLORIDE [Concomitant]
  11. DIGOXIN [Concomitant]

REACTIONS (1)
  - EYE DISORDER [None]
